FAERS Safety Report 19157941 (Version 1)
Quarter: 2021Q2

REPORT INFORMATION
  Report Type: Report from Study
  Country: US (occurrence: US)
  Receive Date: 20210420
  Receipt Date: 20210420
  Transmission Date: 20210717
  Serious: No
  Sender: FDA-Public Use
  Company Number: NVSC2021US085976

PATIENT
  Sex: Female

DRUGS (1)
  1. ENTRESTO [Suspect]
     Active Substance: SACUBITRIL\VALSARTAN
     Indication: CARDIAC FAILURE CONGESTIVE
     Dosage: 50 MG, UNKNOWN (24/26 MG) (ONE BY MOUTH IN MORNING AND ONE HALF IN EVENING)
     Route: 048

REACTIONS (2)
  - Wrong technique in product usage process [Unknown]
  - Product prescribing error [Unknown]
